FAERS Safety Report 5533775-9 (Version None)
Quarter: 2007Q4

REPORT INFORMATION
  Report Type: 
  Country: None (occurrence: None)
  Receive Date: 20071120
  Receipt Date: 20070719
  Transmission Date: 20080405
  Serious: No
  Sender: FDA-Public Use
  Company Number: WAES 0707USA02348

PATIENT
  Age: 84 Year
  Sex: Male
  Weight: 89.8122 kg

DRUGS (5)
  1. JANUVIA [Suspect]
     Indication: TYPE 2 DIABETES MELLITUS
     Dosage: 100 MG/DAILY/PO
     Route: 048
     Dates: start: 20070130, end: 20070220
  2. JANUVIA [Suspect]
     Indication: TYPE 2 DIABETES MELLITUS
     Dosage: 100 MG/DAILY/PO
     Route: 048
     Dates: start: 20070626, end: 20070630
  3. DYAZIDE [Concomitant]
  4. ALLOPURINOL [Concomitant]
  5. GLIPIZIDE [Concomitant]

REACTIONS (3)
  - DIARRHOEA [None]
  - LACRIMATION INCREASED [None]
  - NEUROPATHY PERIPHERAL [None]
